FAERS Safety Report 7716707-4 (Version None)
Quarter: 2011Q3

REPORT INFORMATION
  Report Type: 
  Country: None (occurrence: None)
  Receive Date: 20110829
  Receipt Date: 20110824
  Transmission Date: 20111222
  Serious: Yes (Hospitalization)
  Sender: FDA-Public Use
  Company Number: US-ABBOTT-11P-163-0849268-00

PATIENT
  Age: 23 Year
  Sex: Female

DRUGS (8)
  1. HUMIRA [Suspect]
     Dates: start: 20110811
  2. BCP [Concomitant]
     Indication: PRODUCT USED FOR UNKNOWN INDICATION
  3. ATIVAN [Concomitant]
     Indication: PRODUCT USED FOR UNKNOWN INDICATION
  4. VICODIN ES [Concomitant]
     Indication: PAIN
  5. PREDNISONE [Concomitant]
     Indication: CROHN'S DISEASE
  6. MERCAPTOPURINE [Concomitant]
     Indication: CROHN'S DISEASE
  7. HUMIRA [Suspect]
     Indication: CROHN'S DISEASE
     Dates: start: 20110617, end: 20110811
  8. PROTONIC [Concomitant]
     Indication: CROHN'S DISEASE

REACTIONS (2)
  - ABDOMINAL PAIN [None]
  - VOMITING [None]
